FAERS Safety Report 5233784-3 (Version None)
Quarter: 2007Q1

REPORT INFORMATION
  Report Type: 
  Country: None (occurrence: None)
  Receive Date: 20070208
  Receipt Date: 20070131
  Transmission Date: 20070707
  Serious: Yes (Other)
  Sender: FDA-Public Use
  Company Number: US-ROCHE-480648

PATIENT
  Sex: Female

DRUGS (1)
  1. BONIVA [Suspect]
     Indication: DRUG USE FOR UNKNOWN INDICATION
     Route: 042

REACTIONS (5)
  - CHEST PAIN [None]
  - ENCEPHALITIS [None]
  - HEADACHE [None]
  - INFLUENZA LIKE ILLNESS [None]
  - PLEURISY [None]
